FAERS Safety Report 8790321 (Version 4)
Quarter: 2013Q1

REPORT INFORMATION
  Report Type: Report from Study
  Country: AU (occurrence: AU)
  Receive Date: 20120917
  Receipt Date: 20130116
  Transmission Date: 20140127
  Serious: Yes (Death, Hospitalization, Other)
  Sender: FDA-Public Use
  Company Number: AU-GENZYME-CLOF-1001997

PATIENT
  Age: 72 Year
  Sex: Male

DRUGS (5)
  1. CLOLAR [Suspect]
     Indication: ACUTE MYELOID LEUKAEMIA
     Dosage: (LOW DOSE CLOFARABINE) 38 MG FOR 4 CYCLES
     Route: 065
     Dates: start: 20110125, end: 20110621
  2. CLOLAR [Suspect]
     Dosage: 39 MG, 1 CYCLE ONLY(SALVAGE)
     Route: 065
     Dates: start: 20120214
  3. WARFARIN [Concomitant]
     Indication: PRODUCT USED FOR UNKNOWN INDICATION
     Dosage: UNK
     Route: 065
  4. MIDAZOLAM [Concomitant]
     Indication: PRODUCT USED FOR UNKNOWN INDICATION
     Dosage: UNK
     Route: 065
     Dates: start: 2012, end: 2012
  5. MORPHINE [Concomitant]
     Indication: PRODUCT USED FOR UNKNOWN INDICATION
     Dosage: UNK
     Route: 058
     Dates: start: 2012, end: 2012

REACTIONS (9)
  - Cardiac failure [Fatal]
  - Acute pulmonary oedema [Recovered/Resolved]
  - Acute pulmonary oedema [Recovered/Resolved]
  - Acute myeloid leukaemia recurrent [Fatal]
  - Haemoptysis [Fatal]
  - Anaemia [Fatal]
  - Neutropenia [Fatal]
  - Thrombocytopenia [Fatal]
  - Neutropenia [Recovered/Resolved]
